FAERS Safety Report 22850834 (Version 3)
Quarter: 2023Q4

REPORT INFORMATION
  Report Type: Report from Study
  Country: CA (occurrence: CA)
  Receive Date: 20230822
  Receipt Date: 20231030
  Transmission Date: 20240110
  Serious: Yes (Other)
  Sender: FDA-Public Use
  Company Number: CA-JNJFOC-20230842894

PATIENT
  Age: 32 Year
  Sex: Female
  Weight: 102 kg

DRUGS (2)
  1. REMICADE [Suspect]
     Active Substance: INFLIXIMAB
     Indication: Ankylosing spondylitis
     Dosage: LAST INFUSION ON 02-AUG-2023.?EXPIRY DATE: MAR-2026
     Route: 041
     Dates: start: 20180606
  2. AMOXICILLIN [Suspect]
     Active Substance: AMOXICILLIN
     Indication: Sinusitis
     Route: 065
     Dates: start: 202308, end: 202308

REACTIONS (6)
  - Migraine [Not Recovered/Not Resolved]
  - Infusion related reaction [Recovered/Resolved]
  - Sinusitis [Recovered/Resolved]
  - Bronchitis [Unknown]
  - Drug hypersensitivity [Unknown]
  - Asthma [Unknown]

NARRATIVE: CASE EVENT DATE: 20230801
